FAERS Safety Report 4703897-0 (Version None)
Quarter: 2005Q2

REPORT INFORMATION
  Report Type: 
  Country: None (occurrence: None)
  Receive Date: 20050630
  Receipt Date: 20020620
  Transmission Date: 20051028
  Serious: Yes (Other)
  Sender: FDA-Public Use
  Company Number: SE-AMGEN-02060518

PATIENT
  Sex: Female

DRUGS (6)
  1. ENBREL [Suspect]
     Indication: RHEUMATOID ARTHRITIS
     Route: 058
  2. ALVEDON [Concomitant]
  3. TENORMIN [Concomitant]
  4. PREDNISOLONE [Concomitant]
  5. VOLTAREN [Concomitant]
  6. CALCICHEW-D3 [Concomitant]

REACTIONS (3)
  - PNEUMONIA [None]
  - SKIN DISORDER [None]
  - VASCULITIS [None]
